FAERS Safety Report 6006906-4 (Version None)
Quarter: 2008Q4

REPORT INFORMATION
  Report Type: 
  Country: None (occurrence: None)
  Receive Date: 20081217
  Receipt Date: 20081212
  Transmission Date: 20090506
  Serious: Yes (Death)
  Sender: FDA-Public Use
  Company Number: US-SANOFI-SYNTHELABO-F01200801894

PATIENT
  Sex: Male
  Weight: 99.8 kg

DRUGS (6)
  1. INSULIN [Concomitant]
  2. ASPIRIN [Concomitant]
  3. STATINS [Concomitant]
  4. ANGIOTENSIN RECEPTOR BLOCKERS [Concomitant]
  5. BETA BLOCKERS [Concomitant]
  6. CLOPIDOGREL [Suspect]
     Indication: ANTIPLATELET THERAPY
     Dosage: 75 OR 150 MG
     Route: 065
     Dates: start: 20080925, end: 20081101

REACTIONS (1)
  - DEATH [None]
